FAERS Safety Report 4502983-8 (Version None)
Quarter: 2004Q4

REPORT INFORMATION
  Report Type: 
  Country: None (occurrence: None)
  Receive Date: 20041112
  Receipt Date: 20041028
  Transmission Date: 20050328
  Serious: No
  Sender: FDA-Public Use
  Company Number: 29678

PATIENT

DRUGS (1)
  1. VIGAMOX [Suspect]

REACTIONS (2)
  - CORNEAL TRANSPLANT [None]
  - KERATITIS FUNGAL [None]
